FAERS Safety Report 14403636 (Version 3)
Quarter: 2018Q1

REPORT INFORMATION
  Report Type: Spontaneous
  Country: JP (occurrence: JP)
  Receive Date: 20180117
  Receipt Date: 20180129
  Transmission Date: 20180509
  Serious: Yes (Death, Life-Threatening, Hospitalization, Other)
  Sender: FDA-Public Use
  Company Number: JP-PFIZER INC-2018018164

PATIENT
  Age: 77 Year
  Sex: Male

DRUGS (1)
  1. EPINEPHRINE. [Suspect]
     Active Substance: EPINEPHRINE
     Indication: RESUSCITATION
     Dosage: 5 MG, UNK
     Route: 042

REACTIONS (5)
  - Condition aggravated [Fatal]
  - Haemodynamic instability [Fatal]
  - Drug ineffective [Unknown]
  - Arteriospasm coronary [Fatal]
  - Acute myocardial infarction [Fatal]
